FAERS Safety Report 4413466-8 (Version None)
Quarter: 2004Q3

REPORT INFORMATION
  Report Type: 
  Country: None (occurrence: None)
  Receive Date: 20040727
  Receipt Date: 20040716
  Transmission Date: 20050211
  Serious: Yes (Life-Threatening, Hospitalization)
  Sender: FDA-Public Use
  Company Number: EM2004-0252

PATIENT
  Age: 73 Year
  Sex: Male

DRUGS (10)
  1. ALDESLEUKIN; CHIRON (PROLEUKIN; CHIRON CORPORATION) INJECTION [Suspect]
     Indication: LYMPHOMA
     Dosage: SEE IMAGE
     Route: 058
     Dates: start: 20040224, end: 20040322
  2. ALDESLEUKIN; CHIRON (PROLEUKIN; CHIRON CORPORATION) INJECTION [Suspect]
     Indication: LYMPHOMA
     Dosage: SEE IMAGE
     Route: 058
     Dates: start: 20040323, end: 20040417
  3. RITUXIMAB (RITUXIMAB) [Suspect]
     Indication: LYMPHOMA
     Dosage: 140 MG, QW, IV
     Route: 042
     Dates: start: 20040217, end: 20040309
  4. IVEEGAM (IMMUNOGLOBULIN HUMAN NORMAL) [Concomitant]
  5. FOLIC ACID [Concomitant]
  6. VALTREX [Concomitant]
  7. MULTIVITAMIN [Concomitant]
  8. VORICONAZOLE [Concomitant]
  9. VITAMIN C (ASCORBIC ACID) [Concomitant]
  10. LEVOFLOXACIN [Concomitant]

REACTIONS (2)
  - CHEST PAIN [None]
  - HAEMOLYTIC ANAEMIA [None]
